FAERS Safety Report 21088355 (Version 1)
Quarter: 2022Q3

REPORT INFORMATION
  Report Type: Spontaneous
  Country: US (occurrence: None)
  Receive Date: 20220715
  Receipt Date: 20220715
  Transmission Date: 20221027
  Serious: Yes (Disabling)
  Sender: FDA-Public Use
  Company Number: None

PATIENT
  Age: 75 Year
  Sex: Male
  Weight: 81.65 kg

DRUGS (9)
  1. GADOLINIUM [Suspect]
     Active Substance: GADOLINIUM
  2. UNSPECIFIED INGREDIENT [Suspect]
     Active Substance: UNSPECIFIED INGREDIENT
  3. Atorvastatin 20 mg/day [Concomitant]
  4. Amlodipine 5 mg/day [Concomitant]
  5. Tamsulosin 0.4 mg/day [Concomitant]
  6. Temazepam 15 mg every other night [Concomitant]
  7. Atenolol 25 mg PRN [Concomitant]
  8. Sildenafil 25 mg PRN [Concomitant]
  9. Vitamin D 10,000 lU/day [Concomitant]

REACTIONS (5)
  - Hypersensitivity [None]
  - Tendon disorder [None]
  - Contrast media reaction [None]
  - Malaise [None]
  - Gastrointestinal disorder [None]

NARRATIVE: CASE EVENT DATE: 20210929
